FAERS Safety Report 8831743 (Version 1)
Quarter: 2012Q4

REPORT INFORMATION
  Report Type: 
  Country: US (occurrence: US)
  Receive Date: 20121009
  Receipt Date: 20121009
  Transmission Date: 20130627
  Serious: Yes (Other)
  Sender: FDA-Public Use
  Company Number: US-PFIZER INC-2012249595

PATIENT
  Age: 59 Year
  Sex: Male
  Weight: 56.69 kg

DRUGS (4)
  1. LYRICA [Suspect]
     Indication: NEURALGIA
     Dosage: 50 mg, UNK
     Route: 048
  2. OXYBUTYNIN [Concomitant]
     Dosage: 5 mg, 3x/day
  3. BACLOFEN [Concomitant]
     Dosage: 10 mg, 3x/day
  4. XANAX [Concomitant]
     Dosage: 0.5 mg, 3x/day

REACTIONS (8)
  - Coeliac disease [Not Recovered/Not Resolved]
  - Inappropriate schedule of drug administration [Unknown]
  - Swelling [Unknown]
  - Pruritus [Unknown]
  - Scratch [Unknown]
  - Paraesthesia [Unknown]
  - Weight decreased [Unknown]
  - Skin burning sensation [Unknown]
